FAERS Safety Report 13590164 (Version 2)
Quarter: 2017Q2

REPORT INFORMATION
  Report Type: Spontaneous
  Country: US (occurrence: US)
  Receive Date: 20170530
  Receipt Date: 20170606
  Transmission Date: 20170830
  Serious: Yes (Life-Threatening, Hospitalization, Other)
  Sender: FDA-Public Use
  Company Number: US-DRREDDYS-USA/USA/17/0091012

PATIENT
  Age: 19 Year
  Sex: Male

DRUGS (14)
  1. CLONAZEPAM. [Suspect]
     Active Substance: CLONAZEPAM
     Indication: STATUS EPILEPTICUS
     Dosage: BY FEEDING TUBE
     Route: 065
  2. ZONISAMIDE. [Suspect]
     Active Substance: ZONISAMIDE
     Indication: STATUS EPILEPTICUS
     Route: 048
  3. ZONISAMIDE. [Suspect]
     Active Substance: ZONISAMIDE
     Dosage: BY FEEDING TUBE
     Route: 065
  4. PHENOBARBITAL. [Suspect]
     Active Substance: PHENOBARBITAL
     Route: 065
  5. CLORAZEPATE [Suspect]
     Active Substance: CLORAZEPATE DIPOTASSIUM
     Indication: STATUS EPILEPTICUS
     Route: 048
  6. PHENOBARBITAL. [Suspect]
     Active Substance: PHENOBARBITAL
     Indication: STATUS EPILEPTICUS
     Route: 048
  7. LACOSAMIDE. [Suspect]
     Active Substance: LACOSAMIDE
     Indication: STATUS EPILEPTICUS
     Route: 048
  8. LEVETIRACETAM. [Suspect]
     Active Substance: LEVETIRACETAM
     Dosage: BY FEEDING TUBE
     Route: 065
  9. PHENYTOIN. [Suspect]
     Active Substance: PHENYTOIN
     Indication: STATUS EPILEPTICUS
     Dosage: BY FEEDING TUBE
     Route: 065
  10. LEVETIRACETAM. [Suspect]
     Active Substance: LEVETIRACETAM
     Indication: STATUS EPILEPTICUS
     Route: 048
  11. LACOSAMIDE. [Suspect]
     Active Substance: LACOSAMIDE
     Dosage: BY FEEDING TUBE
     Route: 065
  12. CLOBAZAM [Suspect]
     Active Substance: CLOBAZAM
     Indication: STATUS EPILEPTICUS
     Route: 065
  13. TOPIRIMATE [Suspect]
     Active Substance: TOPIRAMATE
     Indication: STATUS EPILEPTICUS
     Dosage: BY FEEDING TUBE
     Route: 065
  14. FELBAMATE. [Suspect]
     Active Substance: FELBAMATE
     Indication: STATUS EPILEPTICUS
     Dosage: BY FEEDING TUBE
     Route: 065

REACTIONS (5)
  - Abdominal distension [Unknown]
  - Pneumatosis [Unknown]
  - Small intestinal obstruction [Unknown]
  - Drug ineffective [Unknown]
  - Condition aggravated [Unknown]
